FAERS Safety Report 11559186 (Version 1)
Quarter: 2015Q3

REPORT INFORMATION
  Report Type: Spontaneous
  Country: US (occurrence: None)
  Receive Date: 20150925
  Receipt Date: 20150925
  Transmission Date: 20151125
  Serious: No
  Sender: FDA-Public Use
  Company Number: None

PATIENT
  Age: 66 Year
  Sex: Female
  Weight: 71.22 kg

DRUGS (15)
  1. NYSTATIN. [Concomitant]
     Active Substance: NYSTATIN
  2. VITAMIN C [Concomitant]
     Active Substance: ASCORBIC ACID
  3. JANUMET [Suspect]
     Active Substance: METFORMIN HYDROCHLORIDE\SITAGLIPTIN PHOSPHATE
     Indication: DIABETES MELLITUS
     Dosage: 50/1000 MG, 2 TABLETS EVENING WITH FOOD.
     Route: 048
     Dates: start: 20140618, end: 20140621
  4. LISINOPRIL. [Concomitant]
     Active Substance: LISINOPRIL
  5. BAYER [Concomitant]
     Active Substance: ASPIRIN
  6. CENTRUM [Concomitant]
     Active Substance: VITAMINS
  7. MELOXICAM. [Concomitant]
     Active Substance: MELOXICAM
  8. TRIANVIGINTRONE CREAM [Concomitant]
  9. D3 [Concomitant]
     Active Substance: 25-HYDROXYCHOLECALCIFEROL, 5-TRANS-
  10. METFORMIN [Concomitant]
     Active Substance: METFORMIN HYDROCHLORIDE
  11. ASTORVASTIN [Concomitant]
  12. PANTOPRAZOLE [Concomitant]
     Active Substance: PANTOPRAZOLE SODIUM
  13. ZINC [Concomitant]
     Active Substance: ZINC\ZINC CHLORIDE
  14. CALCIUM [Concomitant]
     Active Substance: CALCIUM
  15. MAGNESIUM [Concomitant]
     Active Substance: MAGNESIUM

REACTIONS (2)
  - Feeling abnormal [None]
  - Coma [None]

NARRATIVE: CASE EVENT DATE: 20140621
